FAERS Safety Report 21376307 (Version 2)
Quarter: 2022Q4

REPORT INFORMATION
  Report Type: Report from Study
  Country: US (occurrence: US)
  Receive Date: 20220926
  Receipt Date: 20221111
  Transmission Date: 20230113
  Serious: Yes (Hospitalization, Other)
  Sender: FDA-Public Use
  Company Number: US-ABBVIE-4129392

PATIENT
  Age: 75 Year
  Sex: Male

DRUGS (1)
  1. IMBRUVICA [Suspect]
     Active Substance: IBRUTINIB
     Indication: Waldenstrom^s macroglobulinaemia
     Route: 048
     Dates: start: 20211220

REACTIONS (7)
  - Blood iron decreased [Unknown]
  - Lung neoplasm malignant [Not Recovered/Not Resolved]
  - Dyspnoea [Recovered/Resolved]
  - Diabetes mellitus [Unknown]
  - Hypertension [Unknown]
  - Prostatic disorder [Unknown]
  - Adverse drug reaction [Unknown]

NARRATIVE: CASE EVENT DATE: 20211201
